FAERS Safety Report 5618898-8 (Version None)
Quarter: 2008Q1

REPORT INFORMATION
  Report Type: 
  Country: None (occurrence: None)
  Receive Date: 20080207
  Receipt Date: 20080128
  Transmission Date: 20080703
  Serious: Yes (Other)
  Sender: FDA-Public Use
  Company Number: IE-ELI_LILLY_AND_COMPANY-IE200801006683

PATIENT
  Age: 34 Year
  Sex: Male

DRUGS (2)
  1. CYMBALTA [Suspect]
     Dosage: 30 MG, DAILY (1/D) FOR TWO WEEKS
     Route: 065
  2. INSULIN [Concomitant]
     Dosage: UNK, DAILY (1/D)
     Route: 065

REACTIONS (1)
  - BLOOD GLUCOSE DECREASED [None]
